FAERS Safety Report 18368796 (Version 1)
Quarter: 2020Q4

REPORT INFORMATION
  Report Type: Spontaneous
  Country: US (occurrence: US)
  Receive Date: 20201010
  Receipt Date: 20201010
  Transmission Date: 20210114
  Serious: Yes (Other)
  Sender: FDA-Public Use
  Company Number: US-ABBVIE-20K-163-3598039-00

PATIENT
  Age: 72 Year
  Sex: Female
  Weight: 64.92 kg

DRUGS (3)
  1. SYNTHROID [Suspect]
     Active Substance: LEVOTHYROXINE SODIUM
     Indication: AUTOIMMUNE THYROIDITIS
     Dosage: WHOLE TABLET 6 DAYS A WEEK
     Route: 048
     Dates: start: 1982
  2. CALCIUM + VITAMIN D3 [Concomitant]
     Active Substance: CALCIUM\CHOLECALCIFEROL
     Indication: MINERAL SUPPLEMENTATION
  3. SYNTHROID [Suspect]
     Active Substance: LEVOTHYROXINE SODIUM
     Dosage: HALF A TABLET 1 DAY A WEEK
     Route: 048
     Dates: start: 1982

REACTIONS (3)
  - Pruritus [Recovering/Resolving]
  - Blood calcium increased [Recovered/Resolved]
  - Hyperparathyroidism [Recovered/Resolved]

NARRATIVE: CASE EVENT DATE: 202004
